FAERS Safety Report 24769922 (Version 2)
Quarter: 2025Q2

REPORT INFORMATION
  Report Type: Spontaneous
  Country: US (occurrence: US)
  Receive Date: 20241224
  Receipt Date: 20250506
  Transmission Date: 20250717
  Serious: Yes (Other)
  Sender: AUROBINDO
  Company Number: US-AUROBINDO-AUR-APL-2024-062308

PATIENT
  Age: 51 Year
  Sex: Female

DRUGS (3)
  1. CARISOPRODOL [Suspect]
     Active Substance: CARISOPRODOL
     Indication: Back pain
     Dosage: 2 DOSAGE FORM, FOUR TIMES/DAY [2 X 350MG TABLETS 4 TIMES DAILY]
     Route: 065
  2. CLONIDINE [Concomitant]
     Active Substance: CLONIDINE
     Indication: Product used for unknown indication
     Route: 065
  3. BUSPIRONE [Concomitant]
     Active Substance: BUSPIRONE HYDROCHLORIDE
     Indication: Product used for unknown indication
     Route: 065

REACTIONS (3)
  - Depressed level of consciousness [Recovered/Resolved]
  - Treatment noncompliance [Unknown]
  - Overdose [Unknown]
